FAERS Safety Report 9287032 (Version 2)
Quarter: 2013Q2

REPORT INFORMATION
  Report Type: Spontaneous
  Country: US (occurrence: None)
  Receive Date: 20130508
  Receipt Date: 20130611
  Transmission Date: 20140414
  Serious: Yes (Life-Threatening, Hospitalization, Other)
  Sender: FDA-Public Use
  Company Number: IMP_06688_2013

PATIENT
  Age: 17 Year
  Sex: Female

DRUGS (1)
  1. BUPROPION [Suspect]
     Indication: MAJOR DEPRESSION
     Dosage: APPROXIMATELY 30 TABLETS
     Route: 048

REACTIONS (10)
  - Suicide attempt [None]
  - Unresponsive to stimuli [None]
  - Convulsion [None]
  - Hypokalaemia [None]
  - Hyperchloraemia [None]
  - Metabolic acidosis [None]
  - Hypocalcaemia [None]
  - Hypoglycaemia [None]
  - Intentional overdose [None]
  - Cardiotoxicity [None]
